FAERS Safety Report 10020760 (Version 2)
Quarter: 2014Q3

REPORT INFORMATION
  Report Type: Spontaneous
  Country: US (occurrence: None)
  Receive Date: 20131129
  Receipt Date: 20140826
  Transmission Date: 20150326
  Serious: Yes (Disabling, Other)
  Sender: FDA-Public Use
  Company Number: 2013SA118286

PATIENT
  Age: 62 Year
  Sex: Female

DRUGS (5)
  1. SOLOSTAR [Concomitant]
     Active Substance: DEVICE
  2. APIDRA [Suspect]
     Active Substance: INSULIN GLULISINE
     Indication: TYPE 2 DIABETES MELLITUS
     Dosage: PARENTERAL/INJECTION, SOLUTION/100
     Route: 051
     Dates: start: 201308
  3. HUMALOG [Concomitant]
     Active Substance: INSULIN LISPRO
  4. LANTUS [Suspect]
     Active Substance: INSULIN GLARGINE
     Indication: TYPE 2 DIABETES MELLITUS
     Dosage: PARENTERAL/INJECTION, SOLUTION/100 IU/ML
     Route: 051
  5. SOLOSTAR [Concomitant]
     Active Substance: DEVICE

REACTIONS (5)
  - Economic problem [None]
  - Blood glucose increased [None]
  - Product packaging issue [None]
  - Cardiac disorder [None]
  - Neuropathy peripheral [None]

NARRATIVE: CASE EVENT DATE: 20131104
